FAERS Safety Report 5024459-4 (Version None)
Quarter: 2006Q2

REPORT INFORMATION
  Report Type: 
  Country: None (occurrence: None)
  Receive Date: 20060608
  Receipt Date: 20060608
  Transmission Date: 20061013
  Serious: Yes (Death, Hospitalization)
  Sender: FDA-Public Use
  Company Number: None

PATIENT
  Sex: Male
  Weight: 78.8 kg

DRUGS (3)
  1. TAXOTERE [Suspect]
     Indication: PROSTATE CANCER
     Dosage: 588 MG
     Dates: start: 20060316, end: 20060519
  2. DEXAMETHASONE TAB [Concomitant]
  3. PREDNISONE [Concomitant]

REACTIONS (6)
  - CARDIO-RESPIRATORY ARREST [None]
  - PNEUMONITIS [None]
  - PRODUCTIVE COUGH [None]
  - PULMONARY OEDEMA [None]
  - PULSE ABSENT [None]
  - RESPIRATORY DISTRESS [None]
